FAERS Safety Report 9220114 (Version 1)
Quarter: 2013Q2

REPORT INFORMATION
  Report Type: Report from Study
  Country: AU (occurrence: AU)
  Receive Date: 20130409
  Receipt Date: 20130409
  Transmission Date: 20140414
  Serious: Yes (Other)
  Sender: FDA-Public Use
  Company Number: AU-ROCHE-1211892

PATIENT
  Age: 65 Year
  Sex: Male

DRUGS (5)
  1. ACTEMRA [Suspect]
     Indication: RHEUMATOID ARTHRITIS
     Route: 065
  2. ACTEMRA [Suspect]
     Route: 042
     Dates: start: 20120420
  3. NEXIUM [Concomitant]
     Route: 048
  4. PREDNISOLONE [Concomitant]
     Indication: RHEUMATOID ARTHRITIS
     Route: 048
  5. TRAMADOL [Concomitant]
     Indication: ANALGESIC THERAPY
     Route: 048

REACTIONS (1)
  - Tachycardia [Recovered/Resolved]
